FAERS Safety Report 7534700-1 (Version None)
Quarter: 2011Q2

REPORT INFORMATION
  Report Type: 
  Country: None (occurrence: None)
  Receive Date: 20110609
  Receipt Date: 20110521
  Transmission Date: 20111010
  Serious: Yes (Other)
  Sender: FDA-Public Use
  Company Number: PHHY2011QA47059

PATIENT

DRUGS (2)
  1. PAMIDRONATE DISODIUM [Suspect]
     Dosage: 20 MG/M2, UNK
     Route: 042
  2. VITAMIN D [Concomitant]

REACTIONS (6)
  - PARATHYROID GLAND ENLARGEMENT [None]
  - CONCOMITANT DISEASE AGGRAVATED [None]
  - BLOOD PARATHYROID HORMONE DECREASED [None]
  - GENE MUTATION [None]
  - HYPERPARATHYROIDISM [None]
  - HYPOCALCAEMIA [None]
